FAERS Safety Report 7599198-6 (Version None)
Quarter: 2011Q3

REPORT INFORMATION
  Report Type: 
  Country: None (occurrence: None)
  Receive Date: 20110711
  Receipt Date: 20110530
  Transmission Date: 20111222
  Serious: Yes (Hospitalization, Other)
  Sender: FDA-Public Use
  Company Number: US-BAYER-2010-007083

PATIENT
  Age: 23 Year
  Sex: Female
  Weight: 132 kg

DRUGS (8)
  1. MAALOX [Concomitant]
  2. REGLAN [Concomitant]
     Indication: PAIN
  3. DONNATAL [Concomitant]
  4. IBUPROFEN [Concomitant]
     Dosage: UNK
     Dates: start: 20080101
  5. DILAUDID [Concomitant]
     Indication: PAIN
  6. YASMIN [Suspect]
     Indication: PRODUCT USED FOR UNKNOWN INDICATION
  7. YAZ [Suspect]
     Indication: CONTRACEPTION
     Dosage: 1 TAB/DAY
     Dates: start: 20081101, end: 20090501
  8. DROSPIRENONE AND ETHINYL ESTRADIOL [Suspect]
     Indication: PRODUCT USED FOR UNKNOWN INDICATION

REACTIONS (5)
  - GALLBLADDER DISORDER [None]
  - GALLBLADDER NON-FUNCTIONING [None]
  - INJURY [None]
  - CHOLELITHIASIS [None]
  - PAIN [None]
